FAERS Safety Report 21892473 (Version 1)
Quarter: 2023Q1

REPORT INFORMATION
  Report Type: Spontaneous
  Country: IR (occurrence: IR)
  Receive Date: 20230120
  Receipt Date: 20230120
  Transmission Date: 20230418
  Serious: Yes (Death, Other)
  Sender: FDA-Public Use
  Company Number: IR-GILEAD-2022-0607497

PATIENT
  Age: 40 Year
  Sex: Female

DRUGS (7)
  1. AMBISOME [Suspect]
     Active Substance: AMPHOTERICIN B
     Indication: Mucormycosis
     Dosage: 5 MG/KG, QD
     Route: 042
  2. VEKLURY [Suspect]
     Active Substance: REMDESIVIR
     Indication: COVID-19
     Dosage: 100 MG
     Route: 065
  3. OXYGEN [Concomitant]
     Active Substance: OXYGEN
  4. DEXAMETHASONE [Concomitant]
     Active Substance: DEXAMETHASONE
  5. PREDNISOLONE [Concomitant]
     Active Substance: PREDNISOLONE
  6. HEPARIN [Concomitant]
     Active Substance: HEPARIN SODIUM
  7. TOCILIZUMAB [Concomitant]
     Active Substance: TOCILIZUMAB

REACTIONS (4)
  - Respiratory failure [Fatal]
  - Haemodynamic instability [Fatal]
  - Drug ineffective [Fatal]
  - Off label use [Unknown]
